FAERS Safety Report 4801377-5 (Version None)
Quarter: 2005Q4

REPORT INFORMATION
  Report Type: 
  Country: None (occurrence: None)
  Receive Date: 20051017
  Receipt Date: 20051011
  Transmission Date: 20060501
  Serious: Yes (Other)
  Sender: FDA-Public Use
  Company Number: NL-ABBOTT-05P-114-0313393-00

PATIENT
  Sex: Male

DRUGS (1)
  1. KLACID GRANULES VOOR SUSPENSIE [Suspect]
     Indication: UPPER RESPIRATORY TRACT INFECTION
     Dates: start: 20050909, end: 20050909

REACTIONS (6)
  - EYE ROLLING [None]
  - HYPERHIDROSIS [None]
  - HYPOTONIA [None]
  - PALLOR [None]
  - SYNCOPE VASOVAGAL [None]
  - TONGUE PARALYSIS [None]
